FAERS Safety Report 20720001 (Version 2)
Quarter: 2022Q2

REPORT INFORMATION
  Report Type: Spontaneous
  Country: US (occurrence: US)
  Receive Date: 20220418
  Receipt Date: 20220523
  Transmission Date: 20220721
  Serious: Yes (Other)
  Sender: FDA-Public Use
  Company Number: US-PFIZER INC-202200549880

PATIENT
  Age: 82 Year

DRUGS (2)
  1. DISOPYRAMIDE PHOSPHATE [Suspect]
     Active Substance: DISOPYRAMIDE PHOSPHATE
     Dosage: EVERY 6 HOURS
  2. ELIQUIS [Concomitant]
     Active Substance: APIXABAN
     Dosage: UNK

REACTIONS (4)
  - Limb operation [Unknown]
  - Drug ineffective [Unknown]
  - Off label use [Unknown]
  - Intentional product misuse [Unknown]
